FAERS Safety Report 10985790 (Version 1)
Quarter: 2015Q2

REPORT INFORMATION
  Report Type: Spontaneous
  Country: US (occurrence: None)
  Receive Date: 20150403
  Receipt Date: 20150403
  Transmission Date: 20150821
  Serious: Yes (Life-Threatening, Hospitalization)
  Sender: FDA-Public Use
  Company Number: None

PATIENT
  Age: 76 Year
  Sex: Male
  Weight: 79.1 kg

DRUGS (2)
  1. ERTAPENEM [Suspect]
     Active Substance: ERTAPENEM
     Indication: URINARY TRACT INFECTION
     Route: 042
     Dates: start: 20150215, end: 20150217
  2. PHENYTOIN. [Suspect]
     Active Substance: PHENYTOIN
     Dosage: MG, TID, PO
     Route: 048

REACTIONS (4)
  - Status epilepticus [None]
  - Complex partial seizures [None]
  - Hypophagia [None]
  - Unresponsive to stimuli [None]

NARRATIVE: CASE EVENT DATE: 20150217
